FAERS Safety Report 5805931-3 (Version None)
Quarter: 2008Q3

REPORT INFORMATION
  Report Type: 
  Country: None (occurrence: None)
  Receive Date: 20080710
  Receipt Date: 20080703
  Transmission Date: 20090109
  Serious: Yes (Hospitalization, Other)
  Sender: FDA-Public Use
  Company Number: US-ASTRAZENECA-2008UW07767

PATIENT
  Age: 465 Month
  Sex: Female
  Weight: 77.3 kg

DRUGS (9)
  1. SEROQUEL [Suspect]
     Indication: SCHIZOPHRENIA
     Dosage: 25 MG, 100 MG, 300 MG
     Route: 048
     Dates: start: 20000101
  2. SEROQUEL [Suspect]
     Indication: BIPOLAR DISORDER
     Dosage: 25 MG, 100 MG, 300 MG
     Route: 048
     Dates: start: 20000101
  3. SEROQUEL [Suspect]
     Indication: MAJOR DEPRESSION
     Dosage: 25 MG, 100 MG, 300 MG
     Route: 048
     Dates: start: 20000101
  4. CLOZARIL [Concomitant]
  5. RISPERDAL [Concomitant]
  6. THORAZINE [Concomitant]
     Dates: start: 20060101
  7. ZYPREXA [Concomitant]
  8. TRAMADOL HCL [Concomitant]
     Dates: start: 20010101, end: 20020101
  9. METHADON HCL TAB [Concomitant]
     Dates: start: 20060101

REACTIONS (6)
  - BLOOD CHOLESTEROL INCREASED [None]
  - CONVULSION [None]
  - DIABETES MELLITUS [None]
  - HYPERSENSITIVITY [None]
  - INTERVERTEBRAL DISC DEGENERATION [None]
  - PANCREATITIS [None]
